FAERS Safety Report 6580696-9 (Version None)
Quarter: 2010Q1

REPORT INFORMATION
  Report Type: 
  Country: None (occurrence: None)
  Receive Date: 20100212
  Receipt Date: 20100204
  Transmission Date: 20100710
  Serious: Yes (Death)
  Sender: FDA-Public Use
  Company Number: JP-GILEAD-E2B_00000592

PATIENT
  Sex: Female

DRUGS (4)
  1. HEPSERA [Suspect]
     Indication: HEPATIC CIRRHOSIS
     Dosage: 10MG PER DAY
     Route: 048
     Dates: start: 20041220
  2. ZEFIX [Suspect]
     Indication: HEPATIC CIRRHOSIS
     Dosage: 100MG PER DAY
     Route: 048
     Dates: start: 20020412
  3. URSO 250 [Concomitant]
     Indication: HEPATIC CIRRHOSIS
     Dosage: 100MG THREE TIMES PER DAY
     Route: 048
  4. PROMAC [Concomitant]
     Indication: GASTRITIS
     Route: 048

REACTIONS (2)
  - CARDIAC FAILURE [None]
  - CHRONIC RESPIRATORY FAILURE [None]
